FAERS Safety Report 15837427 (Version 1)
Quarter: 2019Q1

REPORT INFORMATION
  Report Type: Spontaneous
  Country: CN (occurrence: CN)
  Receive Date: 20190117
  Receipt Date: 20190117
  Transmission Date: 20190417
  Serious: Yes (Other)
  Sender: FDA-Public Use
  Company Number: CN-BAYER-2019-008981

PATIENT
  Sex: Male

DRUGS (1)
  1. STIVARGA [Suspect]
     Active Substance: REGORAFENIB
     Indication: COLORECTAL CANCER
     Route: 048

REACTIONS (6)
  - Herpes virus infection [None]
  - Peripheral swelling [None]
  - Haematuria [Recovering/Resolving]
  - Metastases to bladder [None]
  - Pain of skin [None]
  - Erythema [None]
